FAERS Safety Report 6904935-7 (Version None)
Quarter: 2010Q3

REPORT INFORMATION
  Report Type: 
  Country: None (occurrence: None)
  Receive Date: 20100804
  Receipt Date: 20090810
  Transmission Date: 20110219
  Serious: No
  Sender: FDA-Public Use
  Company Number: US-PFIZER INC-2009210179

PATIENT
  Sex: Female
  Weight: 138 kg

DRUGS (20)
  1. LYRICA [Suspect]
     Indication: BACK PAIN
     Dosage: 100 MG, 2X/DAY
     Route: 048
     Dates: start: 20090408
  2. LYRICA [Suspect]
     Indication: SPONDYLITIS
  3. LYRICA [Suspect]
     Indication: FIBROMYALGIA
  4. LOPID [Concomitant]
     Dosage: UNK
  5. ACETYLSALICYLIC ACID [Concomitant]
     Dosage: UNK
  6. MIRAPEX [Concomitant]
     Dosage: UNK
  7. VITAMIN B-12 [Concomitant]
     Dosage: UNK
  8. PROTONIX [Concomitant]
     Dosage: UNK
  9. LASIX [Concomitant]
     Dosage: 20 MG, 1X/DAY
  10. ZESTRIL [Concomitant]
     Dosage: 20 MG, 1X/DAY
  11. ARICEPT [Concomitant]
     Dosage: 10MG AT BED TIME
  12. NAMENDA [Concomitant]
     Dosage: 5 MG, 2X/DAY
  13. ZONEGRAN [Concomitant]
     Dosage: TWO 100MG CAPSULE A DAY
  14. LEXAPRO [Concomitant]
     Dosage: UNK
  15. SYNTHROID [Concomitant]
     Dosage: UNK
  16. CYTOMEL [Concomitant]
     Dosage: 5 UG, 2X/DAY
  17. VITAMIN D [Concomitant]
     Dosage: UNK
  18. LISINOPRIL [Concomitant]
     Dosage: UNK
  19. PERCOCET [Concomitant]
     Dosage: UNK
  20. TEMOZOLOMIDE [Concomitant]

REACTIONS (5)
  - BURNING SENSATION [None]
  - DRUG INEFFECTIVE [None]
  - MUSCLE SPASMS [None]
  - MUSCLE TWITCHING [None]
  - PARAESTHESIA [None]
